FAERS Safety Report 20151819 (Version 1)
Quarter: 2021Q4

REPORT INFORMATION
  Report Type: Spontaneous
  Country: US (occurrence: None)
  Receive Date: 20211204
  Receipt Date: 20211204
  Transmission Date: 20220303
  Serious: No
  Sender: FDA-Public Use
  Company Number: None

PATIENT
  Age: 61 Year
  Sex: Female
  Weight: 63 kg

DRUGS (1)
  1. EXPAREL [Suspect]
     Active Substance: BUPIVACAINE
     Indication: Ankle operation
     Route: 058

REACTIONS (3)
  - Head titubation [None]
  - Tremor [None]
  - Drug ineffective [None]

NARRATIVE: CASE EVENT DATE: 20211202
